FAERS Safety Report 7621001-6 (Version None)
Quarter: 2011Q3

REPORT INFORMATION
  Report Type: 
  Country: None (occurrence: None)
  Receive Date: 20110719
  Receipt Date: 20100708
  Transmission Date: 20111222
  Serious: No
  Sender: FDA-Public Use
  Company Number: US-KINGPHARMUSA00001-K201000872

PATIENT
  Age: 44 Year
  Sex: Female
  Weight: 113.38 kg

DRUGS (1)
  1. LEVOXYL [Suspect]
     Indication: HYPOTHYROIDISM
     Dosage: 100 MCG, QAM
     Route: 048
     Dates: start: 20080101

REACTIONS (10)
  - CONSTIPATION [None]
  - EXTRASYSTOLES [None]
  - ONYCHOCLASIS [None]
  - GINGIVAL BLEEDING [None]
  - FATIGUE [None]
  - HYPOAESTHESIA [None]
  - OBSESSIVE THOUGHTS [None]
  - ALOPECIA [None]
  - DRY SKIN [None]
  - MYALGIA [None]
